FAERS Safety Report 8846040 (Version 4)
Quarter: 2012Q4

REPORT INFORMATION
  Report Type: Report from Study
  Country: SE (occurrence: SE)
  Receive Date: 20121017
  Receipt Date: 20121130
  Transmission Date: 20130627
  Serious: Yes (Hospitalization)
  Sender: FDA-Public Use
  Company Number: SE-ABBOTT-12P-150-0994011-00

PATIENT
  Age: 62 Year
  Sex: Female

DRUGS (5)
  1. HUMIRA [Suspect]
     Indication: RHEUMATOID ARTHRITIS
     Route: 058
     Dates: start: 20081107, end: 20120321
  2. METHOTREXATE [Suspect]
     Indication: RHEUMATOID ARTHRITIS
     Dosage: 12 mg weekly
     Route: 048
     Dates: start: 20060223, end: 20120321
  3. METHOTREXATE [Suspect]
  4. METHOTREXATE [Suspect]
     Indication: RHEUMATOID ARTHRITIS
     Dosage: Unknown weekly dose
     Route: 048
     Dates: start: 20060223, end: 20120321
  5. METHOTREXATE [Suspect]

REACTIONS (1)
  - Idiopathic thrombocytopenic purpura [Recovered/Resolved]
